FAERS Safety Report 5106468-X (Version None)
Quarter: 2006Q3

REPORT INFORMATION
  Report Type: 
  Country: None (occurrence: None)
  Receive Date: 20060912
  Receipt Date: 20060828
  Transmission Date: 20061208
  Serious: Yes (Other)
  Sender: FDA-Public Use
  Company Number: 2006JP003028

PATIENT
  Age: 65 Year
  Sex: Male
  Weight: 60 kg

DRUGS (4)
  1. FUNGUARD (MICAFUNGIN) INJECTION [Suspect]
     Indication: SYSTEMIC CANDIDA
     Dosage: 150 MG, UID/QD, IV DRIP
     Route: 041
     Dates: start: 20051014, end: 20051018
  2. MEROPEN (MEROPENEM) [Suspect]
     Dosage: 1.5 G
     Dates: start: 20051014, end: 20051018
  3. GLOVENIN (IMMUNOGLOBULIN HUMAN NORMAL) [Concomitant]
  4. STRONGER NEO MINOPHAGEN C (AMINOCETIC ACID GLYCYRRHIZIC ACID, CYSTEINE [Concomitant]

REACTIONS (2)
  - BLOOD ALKALINE PHOSPHATASE INCREASED [None]
  - GAMMA-GLUTAMYLTRANSFERASE INCREASED [None]
